FAERS Safety Report 10895899 (Version 1)
Quarter: 2015Q1

REPORT INFORMATION
  Report Type: Spontaneous
  Country: DE (occurrence: DE)
  Receive Date: 20150307
  Receipt Date: 20150307
  Transmission Date: 20150721
  Serious: Yes (Congenital Anomaly, Other)
  Sender: FDA-Public Use
  Company Number: DE-SUN PHARMACEUTICAL INDUSTRIES LTD-2015SUN00662

PATIENT

DRUGS (6)
  1. CARBOPLATIN 10 MG/ML CONCENTRATE FOR SOLUTION FOR INFUSION [Suspect]
     Active Substance: CARBOPLATIN
     Indication: INTRADUCTAL PROLIFERATIVE BREAST LESION
  2. TAXOTERE [Suspect]
     Active Substance: DOCETAXEL
     Indication: INVASIVE DUCTAL BREAST CARCINOMA
     Dosage: 75 MG/M2, 3-WEEKLY
     Route: 064
  3. TAXOTERE [Suspect]
     Active Substance: DOCETAXEL
     Indication: INTRADUCTAL PROLIFERATIVE BREAST LESION
  4. CARBOPLATIN 10 MG/ML CONCENTRATE FOR SOLUTION FOR INFUSION [Suspect]
     Active Substance: CARBOPLATIN
     Indication: INVASIVE DUCTAL BREAST CARCINOMA
     Dosage: AUC 6, EVERY 21 DAYS
     Route: 064
  5. HERCEPTIN [Suspect]
     Active Substance: TRASTUZUMAB
     Indication: INVASIVE DUCTAL BREAST CARCINOMA
     Dosage: 4 MG/KG, WEEKLY
     Route: 064
  6. HERCEPTIN [Suspect]
     Active Substance: TRASTUZUMAB
     Indication: INTRADUCTAL PROLIFERATIVE BREAST LESION

REACTIONS (7)
  - Premature baby [Unknown]
  - Oligohydramnios [None]
  - Foetal growth restriction [Not Recovered/Not Resolved]
  - Foetal exposure during pregnancy [Unknown]
  - Maternal drugs affecting foetus [None]
  - Caesarean section [None]
  - Congenital anomaly [Unknown]
